FAERS Safety Report 8473465-6 (Version None)
Quarter: 2012Q2

REPORT INFORMATION
  Report Type: 
  Country: None (occurrence: None)
  Receive Date: 20120625
  Receipt Date: 20120625
  Transmission Date: 20120825
  Serious: Yes (Other)
  Sender: FDA-Public Use
  Company Number: None

PATIENT
  Sex: Female

DRUGS (3)
  1. TRIAMETERENE [Concomitant]
  2. CYMBALTA [Suspect]
     Dosage: 30MG ONCE A DAY PO ONCE
     Route: 048
  3. ATANATAL [Concomitant]

REACTIONS (1)
  - BLOOD PRESSURE INCREASED [None]
